FAERS Safety Report 23450543 (Version 1)
Quarter: 2024Q1

REPORT INFORMATION
  Report Type: Spontaneous
  Country: FR (occurrence: FR)
  Receive Date: 20240129
  Receipt Date: 20240129
  Transmission Date: 20240409
  Serious: Yes (Other)
  Sender: FDA-Public Use
  Company Number: None

PATIENT
  Age: 70 Year
  Sex: Male
  Weight: 82 kg

DRUGS (1)
  1. CISPLATIN [Suspect]
     Active Substance: CISPLATIN
     Indication: Squamous cell carcinoma of the tongue
     Dates: start: 20230615, end: 20230621

REACTIONS (1)
  - Hyperthyroidism [Recovered/Resolved with Sequelae]

NARRATIVE: CASE EVENT DATE: 20230601
